FAERS Safety Report 16724576 (Version 1)
Quarter: 2019Q4

REPORT INFORMATION
  Report Type: Spontaneous
  Country: US (occurrence: US)
  Receive Date: 20190820
  Receipt Date: 20190820
  Transmission Date: 20200122
  Serious: Yes (Other)
  Sender: FDA-Public Use
  Company Number: None

PATIENT
  Age: 103 Year
  Sex: Female
  Weight: 38.3 kg

DRUGS (2)
  1. VITAMIN D 1000 UNITS DAILY [Concomitant]
  2. FIRVANQ [Suspect]
     Active Substance: VANCOMYCIN HYDROCHLORIDE
     Indication: CLOSTRIDIUM DIFFICILE INFECTION
     Route: 048
     Dates: start: 20171104, end: 20180615

REACTIONS (3)
  - Sputum increased [None]
  - Dysphagia [None]
  - Hypersensitivity [None]

NARRATIVE: CASE EVENT DATE: 20180615
